FAERS Safety Report 5916759-8 (Version None)
Quarter: 2008Q4

REPORT INFORMATION
  Report Type: 
  Country: None (occurrence: None)
  Receive Date: 20081013
  Receipt Date: 20081003
  Transmission Date: 20090506
  Serious: Yes (Hospitalization)
  Sender: FDA-Public Use
  Company Number: US-PFIZER INC-2006018740

PATIENT
  Sex: Female
  Weight: 50.6 kg

DRUGS (7)
  1. SUTENT [Suspect]
     Indication: GASTROINTESTINAL STROMAL TUMOUR
     Route: 048
     Dates: start: 20050517
  2. ATIVAN [Concomitant]
     Route: 048
     Dates: start: 20030425
  3. BENADRYL [Concomitant]
     Route: 048
     Dates: start: 20050505
  4. TYLENOL (CAPLET) [Concomitant]
     Route: 048
     Dates: start: 20050505
  5. OMEPRAZOLE [Concomitant]
     Route: 048
     Dates: start: 20040816
  6. MS CONTIN [Concomitant]
     Route: 048
     Dates: start: 20060111
  7. OXYCODONE HCL [Concomitant]
     Route: 048
     Dates: start: 20040510

REACTIONS (4)
  - ABDOMINAL PAIN [None]
  - CHEST PAIN [None]
  - NAUSEA [None]
  - VOMITING [None]
